FAERS Safety Report 21348833 (Version 1)
Quarter: 2022Q3

REPORT INFORMATION
  Report Type: Report from Study
  Country: AR (occurrence: AR)
  Receive Date: 20220919
  Receipt Date: 20220919
  Transmission Date: 20221027
  Serious: Yes (Hospitalization)
  Sender: FDA-Public Use
  Company Number: AR-NOVARTISPH-NVSC2022AR209242

PATIENT
  Sex: Male

DRUGS (1)
  1. CYCLOSPORINE [Suspect]
     Active Substance: CYCLOSPORINE
     Indication: Abdominal discomfort
     Dosage: 100 MG
     Route: 048

REACTIONS (3)
  - Thrombosis [Unknown]
  - Infection [Unknown]
  - Product use in unapproved indication [Unknown]
